FAERS Safety Report 6938028-X (Version None)
Quarter: 2010Q3

REPORT INFORMATION
  Report Type: 
  Country: None (occurrence: None)
  Receive Date: 20100824
  Receipt Date: 20100813
  Transmission Date: 20110219
  Serious: Yes (Hospitalization)
  Sender: FDA-Public Use
  Company Number: US-US-EMD SERONO, INC.-7010590

PATIENT
  Sex: Female

DRUGS (5)
  1. REBIF [Suspect]
     Indication: MULTIPLE SCLEROSIS
     Dates: start: 20100501, end: 20100501
  2. LAMICTAL [Concomitant]
     Indication: BIPOLAR II DISORDER
     Dates: end: 20100501
  3. LAMICTAL [Concomitant]
     Dates: start: 20100501
  4. VITAMIN D [Concomitant]
  5. CLONAZEPAM [Concomitant]

REACTIONS (2)
  - DEPRESSION [None]
  - SUICIDAL IDEATION [None]
